FAERS Safety Report 8223659-X (Version None)
Quarter: 2012Q1

REPORT INFORMATION
  Report Type: 
  Country: None (occurrence: None)
  Receive Date: 20120316
  Receipt Date: 20120302
  Transmission Date: 20120608
  Serious: No
  Sender: FDA-Public Use
  Company Number: B0784891A

PATIENT
  Age: 73 Year
  Sex: Male

DRUGS (1)
  1. CEFUROXIME SODIUM [Suspect]
     Indication: CARBON MONOXIDE POISONING
     Dosage: 1.5 GRAM(S)/TWICE PER DAY/ INTRAVENOUS
     Route: 042
     Dates: start: 20100318, end: 20100323

REACTIONS (3)
  - DYSPNOEA [None]
  - DERMATITIS EXFOLIATIVE [None]
  - PRURITUS [None]
